FAERS Safety Report 23294612 (Version 5)
Quarter: 2025Q1

REPORT INFORMATION
  Report Type: Spontaneous
  Country: JP (occurrence: JP)
  Receive Date: 20231213
  Receipt Date: 20250116
  Transmission Date: 20250409
  Serious: Yes (Disabling)
  Sender: MERCK
  Company Number: JP-MSD-M2023-53754

PATIENT
  Age: 83 Year
  Sex: Female

DRUGS (2)
  1. KEYTRUDA [Suspect]
     Active Substance: PEMBROLIZUMAB
     Indication: Rectal cancer stage IV
     Dosage: 200 MILLIGRAM, Q3W
     Route: 041
     Dates: start: 202311, end: 202311
  2. KEYTRUDA [Suspect]
     Active Substance: PEMBROLIZUMAB
     Indication: Microsatellite instability cancer

REACTIONS (4)
  - Visual acuity reduced [Recovered/Resolved]
  - Tumour marker increased [Recovered/Resolved]
  - Mucosal inflammation [Unknown]
  - Stomatitis [Recovered/Resolved]

NARRATIVE: CASE EVENT DATE: 20231101
